FAERS Safety Report 20513772 (Version 1)
Quarter: 2022Q1

REPORT INFORMATION
  Report Type: Spontaneous
  Country: US (occurrence: US)
  Receive Date: 20220224
  Receipt Date: 20220224
  Transmission Date: 20220423
  Serious: No
  Sender: FDA-Public Use
  Company Number: US-MYLANLABS-2022M1008242

PATIENT
  Sex: Female
  Weight: 53.52 kg

DRUGS (5)
  1. ESTRADIOL [Suspect]
     Active Substance: ESTRADIOL
     Indication: Vulvovaginal dryness
     Dosage: 1 GRAM, QW
     Route: 067
     Dates: start: 20211003
  2. PANTOPRAZOLE [Concomitant]
     Active Substance: PANTOPRAZOLE
     Indication: Gastrooesophageal reflux disease
     Dosage: 1 DOSAGE FORM, QD
  3. FLUOCINONIDE [Concomitant]
     Active Substance: FLUOCINONIDE
     Indication: Seborrhoeic dermatitis
     Dosage: 60 MILLILITER, PRN
     Route: 061
  4. CLINDAMYCIN [Concomitant]
     Active Substance: CLINDAMYCIN
     Indication: Seborrhoeic dermatitis
     Dosage: 16 MILLILITER, PRN
     Route: 061
  5. TACROLIMUS [Concomitant]
     Active Substance: TACROLIMUS
     Indication: Seborrhoeic dermatitis
     Dosage: UNK

REACTIONS (3)
  - Off label use [Unknown]
  - Product packaging quantity issue [Unknown]
  - Product quality issue [Unknown]
